FAERS Safety Report 7772101-1 (Version None)
Quarter: 2011Q3

REPORT INFORMATION
  Report Type: 
  Country: None (occurrence: None)
  Receive Date: 20110922
  Receipt Date: 20100729
  Transmission Date: 20111222
  Serious: No
  Sender: FDA-Public Use
  Company Number: US-ASTRAZENECA-2010SE35847

PATIENT
  Age: 72 Year
  Sex: Male

DRUGS (4)
  1. LEVADOPA [Concomitant]
  2. PRILOSEC [Suspect]
     Route: 048
     Dates: start: 20100501, end: 20100501
  3. CLONAZEPAM [Concomitant]
  4. SEROQUEL [Suspect]
     Route: 048
     Dates: start: 20100201, end: 20100501

REACTIONS (3)
  - MUSCULAR WEAKNESS [None]
  - MUSCULOSKELETAL DISCOMFORT [None]
  - CONFUSIONAL STATE [None]
